FAERS Safety Report 21146005 (Version 1)
Quarter: 2022Q3

REPORT INFORMATION
  Report Type: Other
  Country: KR (occurrence: None)
  Receive Date: 20220729
  Receipt Date: 20220729
  Transmission Date: 20221027
  Serious: Yes (Hospitalization)
  Sender: FDA-Public Use
  Company Number: KR-ROCHE-3147282

PATIENT
  Age: 57 Year
  Sex: Male
  Weight: 80.2 kg

DRUGS (4)
  1. ATEZOLIZUMAB [Suspect]
     Active Substance: ATEZOLIZUMAB
     Indication: Hepatocellular carcinoma
     Dosage: SUBSEQUENT DOSE: 14/MAY/2021, 04/JUN/2021
     Route: 041
     Dates: start: 20210423
  2. BEVACIZUMAB [Suspect]
     Active Substance: BEVACIZUMAB
     Indication: Hepatocellular carcinoma
     Dosage: SUBSEQUENT DOSE: 14/MAY/2021, 04/JUN/2021
     Route: 042
     Dates: start: 20210423
  3. LASIX [Concomitant]
     Active Substance: FUROSEMIDE
     Indication: Hepatic cirrhosis
     Dates: start: 20210423
  4. ALDACTONE [Concomitant]
     Active Substance: SPIRONOLACTONE
     Indication: Hepatic cirrhosis
     Dates: start: 20210423

REACTIONS (2)
  - Chest discomfort [Recovered/Resolved]
  - Gastric ulcer [Recovered/Resolved]

NARRATIVE: CASE EVENT DATE: 20210605
